FAERS Safety Report 7812580-4 (Version None)
Quarter: 2011Q4

REPORT INFORMATION
  Report Type: 
  Country: None (occurrence: None)
  Receive Date: 20111013
  Receipt Date: 20111006
  Transmission Date: 20120403
  Serious: Yes (Life-Threatening, Hospitalization)
  Sender: FDA-Public Use
  Company Number: ZW-ABBOTT-10P-190-0680346-00

PATIENT
  Sex: Female

DRUGS (5)
  1. ANTI-TB DRUGS [Concomitant]
     Indication: TUBERCULOSIS
  2. DIDANOSINE [Concomitant]
     Indication: PRODUCT USED FOR UNKNOWN INDICATION
     Dates: start: 20100819
  3. LOPINAVIR/RITONAVIR [Suspect]
     Indication: HIV INFECTION
     Route: 048
     Dates: start: 20100819
  4. COTRIM [Concomitant]
     Indication: PRODUCT USED FOR UNKNOWN INDICATION
     Dates: start: 20050315
  5. ABACAVIR [Interacting]
     Indication: PRODUCT USED FOR UNKNOWN INDICATION
     Dates: start: 20100819

REACTIONS (4)
  - VOMITING [None]
  - GASTROENTERITIS [None]
  - TUBERCULOSIS [None]
  - DIARRHOEA [None]
